FAERS Safety Report 19445423 (Version 1)
Quarter: 2021Q2

REPORT INFORMATION
  Report Type: Other
  Country: HU (occurrence: HU)
  Receive Date: 20210622
  Receipt Date: 20210622
  Transmission Date: 20210717
  Serious: Yes (Other)
  Sender: FDA-Public Use
  Company Number: HU-ROCHE-2854731

PATIENT
  Weight: 32 kg

DRUGS (10)
  1. MYCOPHENOLATE MOFETIL. [Suspect]
     Active Substance: MYCOPHENOLATE MOFETIL
     Indication: PROPHYLAXIS AGAINST TRANSPLANT REJECTION
  2. DARBEPOETIN ALFA [Concomitant]
     Active Substance: DARBEPOETIN ALFA
  3. ALLOPURINOL. [Concomitant]
     Active Substance: ALLOPURINOL
  4. IRON [Concomitant]
     Active Substance: IRON
  5. NAHCO3 [Concomitant]
     Active Substance: SODIUM BICARBONATE
  6. TACROLIMUS. [Suspect]
     Active Substance: TACROLIMUS
     Indication: PROPHYLAXIS AGAINST TRANSPLANT REJECTION
     Route: 065
  7. TACROLIMUS. [Suspect]
     Active Substance: TACROLIMUS
     Indication: PROPHYLAXIS AGAINST TRANSPLANT REJECTION
  8. VITAMIN B COMPLEX [Concomitant]
     Active Substance: CYANOCOBALAMIN\DEXPANTHENOL\NIACINAMIDE\PYRIDOXINE HYDROCHLORIDE\RIBOFLAVIN 5^-PHOSPHATE SODIUM\THIAMINE HYDROCHLORIDE\VITAMIN B COMPLEX
  9. MYCOPHENOLATE MOFETIL. [Suspect]
     Active Substance: MYCOPHENOLATE MOFETIL
     Indication: PROPHYLAXIS AGAINST TRANSPLANT REJECTION
     Route: 065
  10. FAMOTIDINE. [Concomitant]
     Active Substance: FAMOTIDINE

REACTIONS (1)
  - Crohn^s disease [Recovered/Resolved]
